FAERS Safety Report 17172376 (Version 2)
Quarter: 2019Q4

REPORT INFORMATION
  Report Type: Spontaneous
  Country: JP (occurrence: JP)
  Receive Date: 20191219
  Receipt Date: 20191227
  Transmission Date: 20200122
  Serious: Yes (Hospitalization)
  Sender: FDA-Public Use
  Company Number: JP-TEVA-2019-JP-1152263

PATIENT
  Age: 76 Year
  Sex: Female

DRUGS (16)
  1. SENNARIDE [Concomitant]
     Active Substance: SENNOSIDES A AND B
  2. RIVOTRIL [Concomitant]
     Active Substance: CLONAZEPAM
  3. EXCEGRAN [Concomitant]
     Active Substance: ZONISAMIDE
  4. AZILECT [Suspect]
     Active Substance: RASAGILINE MESYLATE
     Dosage: 1 MILLIGRAM DAILY;
     Route: 048
     Dates: start: 201906
  5. MOSAPRIDE CITRATE [Concomitant]
     Active Substance: MOSAPRIDE CITRATE
  6. VESICARE [Concomitant]
     Active Substance: SOLIFENACIN SUCCINATE
  7. TRAZODONE HYDROCHLORIDE. [Concomitant]
     Active Substance: TRAZODONE HYDROCHLORIDE
  8. MEMARY [Concomitant]
     Active Substance: MEMANTINE HYDROCHLORIDE
  9. DAIKENCHUTO [Concomitant]
     Active Substance: HERBALS
  10. RIVASTACH [Concomitant]
     Active Substance: RIVASTIGMINE
  11. YUNASUPIN [Concomitant]
     Active Substance: AMPICILLIN SODIUM\SULBACTAM SODIUM
     Dates: start: 20191204, end: 20191210
  12. AZILECT [Suspect]
     Active Substance: RASAGILINE MESYLATE
     Indication: PARKINSON^S DISEASE
     Dosage: 1 MILLIGRAM DAILY;
     Route: 045
  13. STALEVO [Concomitant]
     Active Substance: CARBIDOPA\ENTACAPONE\LEVODOPA
  14. NOURIAST [Concomitant]
     Active Substance: ISTRADEFYLLINE
  15. CARBOCISTEINE [Concomitant]
     Active Substance: CARBOCYSTEINE
  16. NEUPRO [Concomitant]
     Active Substance: ROTIGOTINE

REACTIONS (5)
  - Eating disorder [Unknown]
  - Condition aggravated [Unknown]
  - Product prescribing error [Unknown]
  - Wrong technique in product usage process [Unknown]
  - Dysphagia [Recovering/Resolving]

NARRATIVE: CASE EVENT DATE: 20191203
